FAERS Safety Report 4863934-X (Version None)
Quarter: 2005Q4

REPORT INFORMATION
  Report Type: 
  Country: None (occurrence: None)
  Receive Date: 20051219
  Receipt Date: 20051213
  Transmission Date: 20060501
  Serious: Yes (Death)
  Sender: FDA-Public Use
  Company Number: 2005-135757-NL

PATIENT
  Age: 37 Year
  Sex: Female

DRUGS (15)
  1. DANAPAROID SODIUM [Suspect]
     Indication: DISSEMINATED INTRAVASCULAR COAGULATION
     Dosage: 1250 ANTI_XA QD/1250 ANTI_XA BID/1250 ANTI_XA BID INTRAVENOUS (NOS)
     Route: 042
     Dates: start: 20050706, end: 20050706
  2. DANAPAROID SODIUM [Suspect]
     Indication: DISSEMINATED INTRAVASCULAR COAGULATION
     Dosage: 1250 ANTI_XA QD/1250 ANTI_XA BID/1250 ANTI_XA BID INTRAVENOUS (NOS)
     Route: 042
     Dates: start: 20050707, end: 20050710
  3. DANAPAROID SODIUM [Suspect]
     Indication: DISSEMINATED INTRAVASCULAR COAGULATION
     Dosage: 1250 ANTI_XA QD/1250 ANTI_XA BID/1250 ANTI_XA BID INTRAVENOUS (NOS)
     Route: 042
     Dates: start: 20050712, end: 20050716
  4. HEPARIN SODIUM [Concomitant]
  5. FAMOTIDINE [Concomitant]
  6. CARPERITIDE [Concomitant]
  7. DOBUTAMINE HCL [Concomitant]
  8. PROPOFOL [Concomitant]
  9. FENTANYL CITRATE [Concomitant]
  10. SULBACTAM SODIUM [Concomitant]
  11. CEFTAZIDIME [Concomitant]
  12. AMIKACIN SULFATE [Concomitant]
  13. DOPAMINE HCL [Concomitant]
  14. NOREPINEPHRINE [Concomitant]
  15. VASOPRESSIN INJECTION [Concomitant]

REACTIONS (3)
  - BLOOD BILIRUBIN INCREASED [None]
  - SEPTIC SHOCK [None]
  - WHITE BLOOD CELL COUNT INCREASED [None]
